FAERS Safety Report 19417755 (Version 2)
Quarter: 2021Q3

REPORT INFORMATION
  Report Type: Spontaneous
  Country: US (occurrence: US)
  Receive Date: 20210615
  Receipt Date: 20210701
  Transmission Date: 20211014
  Serious: Yes (Death, Hospitalization, Other)
  Sender: FDA-Public Use
  Company Number: US-PFIZER INC-2021633727

PATIENT
  Age: 66 Year
  Sex: Female

DRUGS (3)
  1. WARFARIN [Suspect]
     Active Substance: WARFARIN
     Indication: ATRIAL FIBRILLATION
     Dosage: UNK
  2. PARICALCITOL. [Suspect]
     Active Substance: PARICALCITOL
     Dosage: UNK
     Route: 042
  3. CALCIUM ACETATE. [Suspect]
     Active Substance: CALCIUM ACETATE
     Dosage: UNK

REACTIONS (8)
  - Arteriosclerosis coronary artery [Not Recovered/Not Resolved]
  - Calciphylaxis [Not Recovered/Not Resolved]
  - Aortic arteriosclerosis [Not Recovered/Not Resolved]
  - Arteriosclerosis [Not Recovered/Not Resolved]
  - Pulmonary calcification [Not Recovered/Not Resolved]
  - Mitral valve calcification [Not Recovered/Not Resolved]
  - Death [Fatal]
  - Aortic valve sclerosis [Not Recovered/Not Resolved]
